FAERS Safety Report 6773320-3 (Version None)
Quarter: 2010Q2

REPORT INFORMATION
  Report Type: 
  Country: None (occurrence: None)
  Receive Date: 20100616
  Receipt Date: 20100330
  Transmission Date: 20101027
  Serious: No
  Sender: FDA-Public Use
  Company Number: US-ABBOTT-10P-163-0636454-00

PATIENT
  Sex: Female
  Weight: 85.806 kg

DRUGS (4)
  1. TRILIPIX [Suspect]
     Indication: BLOOD TRIGLYCERIDES INCREASED
     Dates: start: 20090501, end: 20100201
  2. TRILIPIX [Suspect]
     Dates: start: 20100301, end: 20100301
  3. LEVAQUIN [Suspect]
     Indication: DRUG USE FOR UNKNOWN INDICATION
     Dates: start: 20090101, end: 20090101
  4. BENICAR HCT [Concomitant]
     Indication: HYPERTENSION

REACTIONS (1)
  - UPPER RESPIRATORY TRACT INFECTION [None]
